FAERS Safety Report 20812664 (Version 2)
Quarter: 2022Q3

REPORT INFORMATION
  Report Type: Spontaneous
  Country: LB (occurrence: None)
  Receive Date: 20220511
  Receipt Date: 20220815
  Transmission Date: 20221027
  Serious: Yes (Other)
  Sender: FDA-Public Use
  Company Number: LB-ROCHE-3091910

PATIENT

DRUGS (1)
  1. TECENTRIQ [Suspect]
     Active Substance: ATEZOLIZUMAB
     Indication: Lung adenocarcinoma
     Dosage: CYCLES NUMBER 11
     Route: 041

REACTIONS (6)
  - Hypersensitivity [Unknown]
  - Oxygen saturation decreased [Unknown]
  - Dyspnoea [Unknown]
  - Suspected counterfeit product [Unknown]
  - Rash [Unknown]
  - Hypotension [Unknown]
